FAERS Safety Report 16654202 (Version 1)
Quarter: 2019Q3

REPORT INFORMATION
  Report Type: Spontaneous
  Country: US (occurrence: US)
  Receive Date: 20190731
  Receipt Date: 20190731
  Transmission Date: 20191004
  Serious: No
  Sender: FDA-Public Use
  Company Number: US-SA-2019SA204503

PATIENT
  Sex: Male

DRUGS (2)
  1. GOLD BOND ORIGINAL STRENGTH POWDER [Suspect]
     Active Substance: MENTHOL\ZINC OXIDE
     Dosage: UNK
     Route: 065
  2. PLAVIX [Suspect]
     Active Substance: CLOPIDOGREL BISULFATE
     Indication: MYOCARDIAL INFARCTION
     Dosage: UNK
     Route: 065

REACTIONS (7)
  - Skin disorder [Unknown]
  - Product use in unapproved indication [Unknown]
  - Contusion [Unknown]
  - Skin exfoliation [Unknown]
  - Skin atrophy [Unknown]
  - Swelling [Unknown]
  - Skin discolouration [Unknown]
